FAERS Safety Report 5031958-8 (Version None)
Quarter: 2006Q2

REPORT INFORMATION
  Report Type: 
  Country: None (occurrence: None)
  Receive Date: 20060619
  Receipt Date: 20060609
  Transmission Date: 20061013
  Serious: Yes (Other)
  Sender: FDA-Public Use
  Company Number: 2006-06-0513

PATIENT
  Age: 56 Year
  Sex: Female

DRUGS (4)
  1. INTRON A [Suspect]
  2. NEORECORMON (EPOETINE BETA) [Concomitant]
  3. FOLIC ACID [Concomitant]
  4. PARACETAMOL [Concomitant]

REACTIONS (2)
  - CONFUSIONAL STATE [None]
  - NEUROLOGICAL SYMPTOM [None]
